FAERS Safety Report 9164555 (Version 1)
Quarter: 2013Q1

REPORT INFORMATION
  Report Type: Spontaneous
  Country: GB (occurrence: None)
  Receive Date: 20130226
  Receipt Date: 20130226
  Transmission Date: 20140127
  Serious: Yes (Other)
  Sender: FDA-Public Use
  Company Number: AUR-APL-2013-01524

PATIENT
  Age: 67 Year
  Sex: Female
  Weight: 61 kg

DRUGS (1)
  1. SIMVASTATIN (SIMVASTATIN) [Suspect]
     Indication: TYPE IIA HYPERLIPIDAEMIA
     Dates: start: 20121121, end: 20130117

REACTIONS (5)
  - Fatigue [None]
  - Lethargy [None]
  - Abnormal dreams [None]
  - Sleep disorder [None]
  - Feeling abnormal [None]
